FAERS Safety Report 7682939-7 (Version None)
Quarter: 2011Q3

REPORT INFORMATION
  Report Type: 
  Country: None (occurrence: None)
  Receive Date: 20110812
  Receipt Date: 20110812
  Transmission Date: 20111222
  Serious: Yes (Other)
  Sender: FDA-Public Use
  Company Number: None

PATIENT
  Age: 68 Year
  Sex: Male
  Weight: 108.8633 kg

DRUGS (2)
  1. MULTAQ [Suspect]
  2. MULTAQ [Suspect]
     Indication: ATRIAL FLUTTER
     Dosage: 400 MG 2/DAY
     Dates: start: 20110701

REACTIONS (3)
  - DIZZINESS [None]
  - HYPOTENSION [None]
  - UNEVALUABLE EVENT [None]
